FAERS Safety Report 7956177 (Version 2)
Quarter: 2012Q4

REPORT INFORMATION
  Report Type: Report from Study
  Country: FR (occurrence: FR)
  Receive Date: 20110523
  Receipt Date: 20120906
  Transmission Date: 20130627
  Serious: Yes (Other)
  Sender: FDA-Public Use
  Company Number: PHHY2011FR41220

PATIENT

DRUGS (1)
  1. EVEROLIMUS [Suspect]
     Indication: RENAL CANCER METASTATIC
     Dates: end: 20110406

REACTIONS (4)
  - Toxic skin eruption [Unknown]
  - Asthenia [Unknown]
  - Epistaxis [Unknown]
  - Oedema peripheral [Unknown]
